FAERS Safety Report 8529246-8 (Version None)
Quarter: 2012Q3

REPORT INFORMATION
  Report Type: 
  Country: None (occurrence: None)
  Receive Date: 20120723
  Receipt Date: 20120709
  Transmission Date: 20120928
  Serious: Yes (Death, Hospitalization, Other)
  Sender: FDA-Public Use
  Company Number: DE-RANBAXY-2010RR-37986

PATIENT
  Age: 60 Year
  Sex: Male
  Weight: 80 kg

DRUGS (7)
  1. LITHIUM CARBONATE [Suspect]
     Indication: SCHIZOAFFECTIVE DISORDER
     Dosage: 295 MG, QD
     Route: 048
     Dates: start: 20080101, end: 20100721
  2. RAMIPRIL [Interacting]
     Dosage: 2.5 MG/DAY
     Route: 048
     Dates: start: 20100729
  3. METFORMIN HYDROCHLORIDE [Concomitant]
     Indication: TYPE 2 DIABETES MELLITUS
     Dosage: 500 MG, TID
     Route: 048
     Dates: start: 20060101, end: 20100721
  4. ULTRAVIST 300 [Suspect]
     Indication: ANGIOGRAM
     Dosage: 250 ML
     Route: 040
     Dates: start: 20100713, end: 20100713
  5. LITHIUM CARBONATE [Suspect]
     Indication: SCHIZOAFFECTIVE DISORDER
     Dosage: 450 MG, QD
     Route: 048
     Dates: start: 20080101, end: 20100718
  6. RAMIPRIL [Interacting]
     Indication: HYPERTENSION
     Dosage: 2.5 MG, BID
     Route: 048
     Dates: start: 20050101, end: 20100722
  7. METOPROLOL TARTRATE [Concomitant]
     Indication: HYPERTENSION
     Dosage: 47.5 MG, QD
     Route: 048
     Dates: start: 20050101

REACTIONS (2)
  - RENAL FAILURE ACUTE [None]
  - DRUG INTERACTION [None]
